FAERS Safety Report 10163983 (Version 1)
Quarter: 2014Q2

REPORT INFORMATION
  Report Type: Spontaneous
  Country: US (occurrence: US)
  Receive Date: 20140510
  Receipt Date: 20140510
  Transmission Date: 20141212
  Serious: No
  Sender: FDA-Public Use
  Company Number: US-BRISTOL-MYERS SQUIBB COMPANY-19749175

PATIENT
  Age: 74 Year
  Sex: Male
  Weight: 131.52 kg

DRUGS (3)
  1. BYETTA [Suspect]
     Indication: TYPE 2 DIABETES MELLITUS
     Dosage: INITIAL DOSE 5MCG THEN DOSE INCREASED TO 10MCG
     Route: 058
  2. METFORMIN [Concomitant]
  3. GLIPIZIDE [Concomitant]

REACTIONS (2)
  - Injection site pruritus [Unknown]
  - Injection site urticaria [Unknown]
